FAERS Safety Report 9677891 (Version 1)
Quarter: 2013Q4

REPORT INFORMATION
  Report Type: Spontaneous
  Country: DE (occurrence: DE)
  Receive Date: 20131108
  Receipt Date: 20131108
  Transmission Date: 20140711
  Serious: Yes (Other)
  Sender: FDA-Public Use
  Company Number: DE-UCBSA-102303

PATIENT
  Age: 37 Year
  Sex: Male

DRUGS (6)
  1. VIMPAT [Suspect]
     Dosage: 1 TABLET; 200 MG
     Route: 048
  2. VIMPAT [Suspect]
     Dosage: DAILY DOSE: 200-0-200
  3. DEXAMETHASON [Suspect]
     Dosage: 1 TABLET; 8 MG
     Route: 048
  4. DEXAMETHASON [Suspect]
     Dosage: 8-0-8 DAILY
  5. LEVETIRACETAM [Suspect]
     Dosage: 2500 MG
     Route: 048
  6. LEVETIRACETAM [Suspect]
     Dosage: 1500-0-1500 DAILY

REACTIONS (2)
  - Somnolence [Unknown]
  - Accidental exposure to product [Unknown]
